FAERS Safety Report 17969281 (Version 2)
Quarter: 2022Q2

REPORT INFORMATION
  Report Type: Spontaneous
  Country: US (occurrence: US)
  Receive Date: 20200701
  Receipt Date: 20220614
  Transmission Date: 20220720
  Serious: No
  Sender: FDA-Public Use
  Company Number: US-PFM-2019-12425

PATIENT
  Age: 9 Month
  Sex: Female

DRUGS (3)
  1. HEMANGEOL [Suspect]
     Active Substance: PROPRANOLOL HYDROCHLORIDE
     Indication: Infantile haemangioma
     Dosage: 2.5 ML, BID (2/DAY)
     Route: 048
     Dates: start: 20190514
  2. CICLOPIROX [Concomitant]
     Active Substance: CICLOPIROX
  3. CETIRIZINE [Concomitant]
     Active Substance: CETIRIZINE HYDROCHLORIDE

REACTIONS (2)
  - Pyrexia [Unknown]
  - Product dose omission issue [Unknown]
